FAERS Safety Report 13816531 (Version 1)
Quarter: 2017Q3

REPORT INFORMATION
  Report Type: Spontaneous
  Country: US (occurrence: US)
  Receive Date: 20170731
  Receipt Date: 20170731
  Transmission Date: 20171127
  Serious: No
  Sender: FDA-Public Use
  Company Number: US-JNJFOC-20170512106

PATIENT
  Sex: Female

DRUGS (3)
  1. ZYRTEC [Suspect]
     Active Substance: CETIRIZINE HYDROCHLORIDE
     Indication: URTICARIA
     Dosage: IN THE MORNING
     Route: 048
  2. ZYRTEC [Suspect]
     Active Substance: CETIRIZINE HYDROCHLORIDE
     Route: 048
  3. CLARITIN [Concomitant]
     Active Substance: LORATADINE
     Indication: URTICARIA
     Route: 065

REACTIONS (4)
  - Product use in unapproved indication [Unknown]
  - Somnolence [Unknown]
  - Fatigue [Unknown]
  - Therapeutic response unexpected [Unknown]
